FAERS Safety Report 12919071 (Version 1)
Quarter: 2016Q4

REPORT INFORMATION
  Report Type: Spontaneous
  Country: US (occurrence: US)
  Receive Date: 20161108
  Receipt Date: 20161108
  Transmission Date: 20170207
  Serious: Yes (Hospitalization, Other)
  Sender: FDA-Public Use
  Company Number: US-ORION CORPORATION ORION PHARMA-ENTC2016-0665

PATIENT
  Sex: Male

DRUGS (7)
  1. NAMENDA XR [Concomitant]
     Active Substance: MEMANTINE HYDROCHLORIDE
     Route: 065
  2. ATORVASTATIN [Concomitant]
     Active Substance: ATORVASTATIN
     Route: 065
  3. ISOSORBIDE MONON [Concomitant]
     Route: 065
  4. AMLODIPIN BESLATE [Concomitant]
     Route: 065
  5. STALEVO [Suspect]
     Active Substance: CARBIDOPA\ENTACAPONE\LEVODOPA
     Route: 065
  6. EXELON [Concomitant]
     Active Substance: RIVASTIGMINE TARTRATE
     Route: 065
  7. METOPROLOL SUCC [Concomitant]
     Active Substance: METOPROLOL SUCCINATE
     Route: 065

REACTIONS (9)
  - Dementia [Unknown]
  - Fall [Unknown]
  - Haemorrhage [Unknown]
  - Head injury [Unknown]
  - Drug dose omission [Unknown]
  - Multiple fractures [Unknown]
  - Parkinson^s disease [Unknown]
  - Agitation [Unknown]
  - Dysphagia [Unknown]
